FAERS Safety Report 11175825 (Version 2)
Quarter: 2015Q2

REPORT INFORMATION
  Report Type: Report from Study
  Country: MX (occurrence: MX)
  Receive Date: 20150609
  Receipt Date: 20150626
  Transmission Date: 20150821
  Serious: Yes (Death, Hospitalization, Other)
  Sender: FDA-Public Use
  Company Number: PHHY2015MX068685

PATIENT
  Age: 25 Year
  Sex: Male
  Weight: 60 kg

DRUGS (2)
  1. GLIVEC [Suspect]
     Active Substance: IMATINIB MESYLATE
     Indication: CHRONIC MYELOID LEUKAEMIA
     Dosage: 400 MG, QD
     Route: 065
     Dates: start: 20150402
  2. GLIVEC [Suspect]
     Active Substance: IMATINIB MESYLATE
     Indication: BONE MARROW RETICULIN FIBROSIS

REACTIONS (12)
  - Septic shock [Unknown]
  - Leukostasis syndrome [Unknown]
  - General physical condition abnormal [Unknown]
  - Leukocytosis [Unknown]
  - Thrombocytopenia [Unknown]
  - Death [Fatal]
  - Multi-organ failure [Unknown]
  - Bicytopenia [Unknown]
  - Pyrexia [Unknown]
  - Polyuria [Unknown]
  - Blast cell crisis [Unknown]
  - Neutropenia [Unknown]

NARRATIVE: CASE EVENT DATE: 20150406
